FAERS Safety Report 17401001 (Version 3)
Quarter: 2020Q1

REPORT INFORMATION
  Report Type: Report from Study
  Country: US (occurrence: US)
  Receive Date: 20200211
  Receipt Date: 20200309
  Transmission Date: 20200409
  Serious: Yes (Hospitalization)
  Sender: FDA-Public Use
  Company Number: US-ROCHE-2472862

PATIENT
  Age: 58 Year
  Sex: Male

DRUGS (8)
  1. OBINUTUZUMAB. [Suspect]
     Active Substance: OBINUTUZUMAB
     Dosage: C1D1
     Route: 042
     Dates: start: 20191106
  2. ATEZOLIZUMAB. [Suspect]
     Active Substance: ATEZOLIZUMAB
     Dosage: C1D3
     Route: 042
     Dates: start: 20191108
  3. LOVENOX [Suspect]
     Active Substance: ENOXAPARIN SODIUM
     Indication: DEEP VEIN THROMBOSIS
     Route: 065
  4. ATEZOLIZUMAB. [Suspect]
     Active Substance: ATEZOLIZUMAB
     Indication: CHRONIC LYMPHOCYTIC LEUKAEMIA
     Dosage: OVER 30-60 MINUTES ON DAYS 3-4 OF CYCLE 1 AND ON DAYS 1-2 OF CYCLES 2-9.
     Route: 042
  5. ATEZOLIZUMAB. [Suspect]
     Active Substance: ATEZOLIZUMAB
     Dosage: C1D4
     Route: 042
     Dates: start: 20191109
  6. OBINUTUZUMAB. [Suspect]
     Active Substance: OBINUTUZUMAB
     Dosage: C1D2
     Route: 042
     Dates: start: 20191107
  7. OBINUTUZUMAB. [Suspect]
     Active Substance: OBINUTUZUMAB
     Indication: CHRONIC LYMPHOCYTIC LEUKAEMIA
     Dosage: OVER 4-6 HOURS ON DAYS 1, 2, 8 AND 15 OF CYCLE 1 AND ON DAY 1 OF CYCLES 2-9.
     Route: 042
     Dates: start: 20191106, end: 20200106
  8. OBINUTUZUMAB. [Suspect]
     Active Substance: OBINUTUZUMAB
     Dosage: C1D18
     Route: 042
     Dates: start: 20191123

REACTIONS (2)
  - Deep vein thrombosis [Unknown]
  - Vascular access complication [Recovered/Resolved]

NARRATIVE: CASE EVENT DATE: 20191110
